FAERS Safety Report 21312274 (Version 1)
Quarter: 2022Q3

REPORT INFORMATION
  Report Type: Spontaneous
  Country: US (occurrence: None)
  Receive Date: 20220909
  Receipt Date: 20220909
  Transmission Date: 20221026
  Serious: No
  Sender: FDA-Public Use
  Company Number: US-ARIS GLOBAL-202205-0855

PATIENT
  Age: 74 Year
  Sex: Male

DRUGS (30)
  1. OXERVATE [Suspect]
     Active Substance: CENEGERMIN-BKBJ
     Indication: Neurotrophic keratopathy
     Route: 047
     Dates: start: 20220415
  2. OXERVATE [Suspect]
     Active Substance: CENEGERMIN-BKBJ
     Indication: Hypoaesthesia eye
  3. PREDNISOLONE-NEPAFENAC [Concomitant]
  4. LOTEMAX [Concomitant]
     Active Substance: LOTEPREDNOL ETABONATE
     Dosage: DROPS GEL, RIGHT EYE
     Dates: start: 20190416
  5. GATIFLOXACIN [Concomitant]
     Active Substance: GATIFLOXACIN
  6. REFRESH CELLUVISC [Concomitant]
     Active Substance: CARBOXYMETHYLCELLULOSE SODIUM
     Dosage: DROPER GEL
  7. RESTASIS [Concomitant]
     Active Substance: CYCLOSPORINE
     Dates: start: 20210514
  8. ACETAMINOPHEN\HYDROCODONE [Concomitant]
     Active Substance: ACETAMINOPHEN\HYDROCODONE
  9. FLOMAX [Concomitant]
     Active Substance: TAMSULOSIN HYDROCHLORIDE
  10. CRESTOR [Concomitant]
     Active Substance: ROSUVASTATIN CALCIUM
  11. LISINOPRIL [Concomitant]
     Active Substance: LISINOPRIL
  12. ASPIRIN [Concomitant]
     Active Substance: ASPIRIN
  13. ALLOPURINOL [Concomitant]
     Active Substance: ALLOPURINOL
  14. DOXYCYCLINE HYCLATE [Concomitant]
     Active Substance: DOXYCYCLINE HYCLATE
     Dates: start: 20190729
  15. OMEGA-3 ACIDS [Concomitant]
     Active Substance: OMEGA-3 FATTY ACIDS
  16. VITAMINS [Concomitant]
     Active Substance: VITAMINS
  17. VALTREX [Concomitant]
     Active Substance: VALACYCLOVIR HYDROCHLORIDE
     Route: 048
     Dates: start: 20211025
  18. GABAPENTIN [Concomitant]
     Active Substance: GABAPENTIN
  19. ELIQUIS [Concomitant]
     Active Substance: APIXABAN
  20. DILTIAZEM HYDROCHLORIDE [Concomitant]
     Active Substance: DILTIAZEM HYDROCHLORIDE
  21. CARVEDILOL [Concomitant]
     Active Substance: CARVEDILOL
  22. JARDIANCE [Concomitant]
     Active Substance: EMPAGLIFLOZIN
  23. METFORMIN HYDROCHLORIDE [Concomitant]
     Active Substance: METFORMIN HYDROCHLORIDE
  24. LANTUS SOLOSTAR [Concomitant]
     Active Substance: INSULIN GLARGINE
  25. NOVOLOG [Concomitant]
     Active Substance: INSULIN ASPART
     Dosage: 100/ML VIAL
  26. LEVOTHYROXINE SODIUM [Concomitant]
     Active Substance: LEVOTHYROXINE SODIUM
  27. OZEMPIC [Concomitant]
     Active Substance: SEMAGLUTIDE
     Dosage: 1/0.75 (3) PEN INJECTOR
  28. GENTEAL MILD [Concomitant]
     Active Substance: HYPROMELLOSE 2910 (4000 MPA.S)
     Dosage: RIGHT EYE
  29. PRED FORTE [Concomitant]
     Active Substance: PREDNISOLONE ACETATE
     Dosage: RIGHT EYE
     Dates: start: 20210514
  30. ZYMAXID [Concomitant]
     Active Substance: GATIFLOXACIN
     Dates: start: 20211025

REACTIONS (2)
  - Eye pain [Not Recovered/Not Resolved]
  - Superficial injury of eye [Recovering/Resolving]

NARRATIVE: CASE EVENT DATE: 20220401
